FAERS Safety Report 16114376 (Version 1)
Quarter: 2019Q1

REPORT INFORMATION
  Report Type: Spontaneous
  Country: US (occurrence: US)
  Receive Date: 20190325
  Receipt Date: 20190325
  Transmission Date: 20190418
  Serious: No
  Sender: FDA-Public Use
  Company Number: US-TEIKOKU PHARMA USA-TPU2019-00201

PATIENT
  Sex: Female
  Weight: 65.83 kg

DRUGS (6)
  1. LIDODERM [Suspect]
     Active Substance: LIDOCAINE
     Indication: DYSTONIA
  2. LYRICA [Concomitant]
     Active Substance: PREGABALIN
     Indication: INTERVERTEBRAL DISC DEGENERATION
     Dosage: TWO CAPSULES A NIGHT AND ONE DURING THE DAY
  3. EPIDURAL [Concomitant]
     Indication: BACK PAIN
     Route: 008
  4. LIDODERM [Suspect]
     Active Substance: LIDOCAINE
     Indication: INTERVERTEBRAL DISC DEGENERATION
     Route: 061
  5. OTHER TOXIN [Concomitant]
  6. FLECTOR [Concomitant]
     Active Substance: DICLOFENAC EPOLAMINE
     Indication: INTERVERTEBRAL DISC DEGENERATION
     Dates: start: 20190109

REACTIONS (1)
  - Drug ineffective for unapproved indication [Unknown]
